FAERS Safety Report 4613858-8 (Version None)
Quarter: 2005Q1

REPORT INFORMATION
  Report Type: 
  Country: None (occurrence: None)
  Receive Date: 20050321
  Receipt Date: 20050225
  Transmission Date: 20050727
  Serious: Yes (Other)
  Sender: FDA-Public Use
  Company Number: PHBS2005BE03033

PATIENT
  Age: 44 Year
  Sex: Female

DRUGS (13)
  1. ZOMETA [Suspect]
     Indication: BREAST CANCER
     Dosage: 15 MG, QMO
     Route: 042
     Dates: start: 20030423, end: 20050208
  2. HERCEPTIN [Concomitant]
     Dosage: UNK, TIW
     Route: 065
  3. XELODA [Concomitant]
     Route: 065
     Dates: start: 20030101
  4. HER1, HER2 INHIBITOR [Concomitant]
     Dosage: UNK, UNK
     Route: 065
     Dates: end: 20041001
  5. CAELYX [Concomitant]
     Route: 065
     Dates: start: 20041001
  6. COVERSYL [Concomitant]
     Dosage: 2 MG, QID
     Route: 065
  7. PYRIDOXINE HCL [Concomitant]
     Dosage: 250 MG/D
     Route: 065
  8. ISO-BETADINE [Concomitant]
     Dosage: UNK, QID
     Route: 065
  9. TRADONAL [Concomitant]
     Dosage: UNK, QID
     Route: 065
  10. FELDENE [Concomitant]
     Dosage: UNK, QD
     Route: 065
  11. DAFALGAN CODEINE [Concomitant]
     Route: 065
  12. XANAX [Concomitant]
     Route: 065
  13. RADIOTHERAPY [Concomitant]
     Dosage: 20 GY
     Route: 065
     Dates: start: 20050104, end: 20050117

REACTIONS (13)
  - ABSCESS DRAINAGE [None]
  - ACTINOMYCOSIS [None]
  - BONE DISORDER [None]
  - BONE OPERATION [None]
  - BONE SCAN ABNORMAL [None]
  - CYST [None]
  - FISTULA [None]
  - OSTEITIS [None]
  - PAIN IN JAW [None]
  - PERIODONTITIS [None]
  - TOOTH ABSCESS [None]
  - TOOTH EXTRACTION [None]
  - WOUND DEHISCENCE [None]
